FAERS Safety Report 7777988-4 (Version None)
Quarter: 2011Q3

REPORT INFORMATION
  Report Type: 
  Country: None (occurrence: None)
  Receive Date: 20110926
  Receipt Date: 20110914
  Transmission Date: 20111222
  Serious: No
  Sender: FDA-Public Use
  Company Number: US-BIOGENIDEC-2011BI035441

PATIENT
  Age: 50 Year
  Sex: Female

DRUGS (1)
  1. AVONEX [Suspect]
     Indication: MULTIPLE SCLEROSIS
     Route: 030
     Dates: start: 20100308

REACTIONS (5)
  - NEUROPATHY PERIPHERAL [None]
  - NEUROGENIC BLADDER [None]
  - FATIGUE [None]
  - INFECTION [None]
  - BALANCE DISORDER [None]
